FAERS Safety Report 15229856 (Version 2)
Quarter: 2019Q4

REPORT INFORMATION
  Report Type: Report from Study
  Country: US (occurrence: US)
  Receive Date: 20180802
  Receipt Date: 20191231
  Transmission Date: 20200122
  Serious: No
  Sender: FDA-Public Use
  Company Number: US-ROCHE-2163102

PATIENT
  Sex: Female

DRUGS (1)
  1. OCREVUS [Suspect]
     Active Substance: OCRELIZUMAB
     Indication: RELAPSING MULTIPLE SCLEROSIS
     Dosage: 300 MG ONCE IN 2 WEEKS FOLLOWED BY 600 MG EVERY 6 MONTH.?NEXT DOSE RECEIVED ON 02/AUG/2018, 01/FEB/2
     Route: 042
     Dates: start: 20180205

REACTIONS (1)
  - Nasopharyngitis [Unknown]
